FAERS Safety Report 20004711 (Version 1)
Quarter: 2021Q4

REPORT INFORMATION
  Report Type: Spontaneous
  Country: US (occurrence: US)
  Receive Date: 20211027
  Receipt Date: 20211027
  Transmission Date: 20220303
  Serious: No
  Sender: FDA-Public Use
  Company Number: None

PATIENT
  Age: 66 Year
  Sex: Female
  Weight: 71.15 kg

DRUGS (22)
  1. IMATINIB. [Suspect]
     Active Substance: IMATINIB MESYLATE
     Indication: Chronic myeloid leukaemia
     Route: 048
     Dates: start: 20210915, end: 20211007
  2. LOPERAMIDE [Suspect]
     Active Substance: LOPERAMIDE
     Route: 048
  3. BACLOFEN [Concomitant]
     Active Substance: BACLOFEN
  4. BAYER ASPIRIN [Concomitant]
     Active Substance: ASPIRIN
  5. Bendaryl [Concomitant]
  6. EFFEXOR XR [Concomitant]
     Active Substance: VENLAFAXINE HYDROCHLORIDE
  7. GLIPIZIDE [Concomitant]
     Active Substance: GLIPIZIDE
  8. IBUPROFEN [Concomitant]
     Active Substance: IBUPROFEN
  9. IMATINIB. [Concomitant]
     Active Substance: IMATINIB MESYLATE
  10. IMODIUM A-D [Concomitant]
     Active Substance: LOPERAMIDE HYDROCHLORIDE
  11. JANUVIA [Concomitant]
     Active Substance: SITAGLIPTIN PHOSPHATE
  12. LIPITOR [Concomitant]
     Active Substance: ATORVASTATIN CALCIUM
  13. LISINOPRIL [Concomitant]
     Active Substance: LISINOPRIL
  14. LOPERAMIDE [Concomitant]
     Active Substance: LOPERAMIDE
  15. MIRALAX [Concomitant]
     Active Substance: POLYETHYLENE GLYCOL 3350
  16. NEURONTIN [Concomitant]
     Active Substance: GABAPENTIN
  17. OSCAL [Concomitant]
     Active Substance: CALCIUM CARBONATE
  18. PEPTO-BISMOL [Concomitant]
     Active Substance: BISMUTH SUBSALICYLATE
  19. PROTONIX [Concomitant]
     Active Substance: PANTOPRAZOLE SODIUM
  20. RISPERDAL [Concomitant]
     Active Substance: RISPERIDONE
  21. SYNTHROID [Concomitant]
     Active Substance: LEVOTHYROXINE SODIUM
  22. TRILEPTAL [Concomitant]
     Active Substance: OXCARBAZEPINE

REACTIONS (16)
  - Abdominal pain [None]
  - Rectal haemorrhage [None]
  - Chills [None]
  - Oedema peripheral [None]
  - Haemoptysis [None]
  - Urine output decreased [None]
  - Diarrhoea [None]
  - Headache [None]
  - Rash [None]
  - Mood altered [None]
  - Nausea [None]
  - Pyrexia [None]
  - Dysarthria [None]
  - Rhinorrhoea [None]
  - Pulmonary congestion [None]
  - Sleep disorder [None]

NARRATIVE: CASE EVENT DATE: 20211007
